FAERS Safety Report 4523211-3 (Version None)
Quarter: 2004Q4

REPORT INFORMATION
  Report Type: 
  Country: None (occurrence: None)
  Receive Date: 20041208
  Receipt Date: 20041129
  Transmission Date: 20050328
  Serious: Yes (Life-Threatening)
  Sender: FDA-Public Use
  Company Number: 2004CG02411

PATIENT
  Age: 50 Year
  Sex: Male
  Weight: 70 kg

DRUGS (4)
  1. DIPRIVAN [Suspect]
     Indication: GENERAL ANAESTHESIA
     Dosage: 100 MG ONCE IV
     Route: 042
     Dates: start: 20041108, end: 20041108
  2. MIDAZOLAM HCL [Suspect]
     Dosage: 1 MG ONCE IV
     Route: 042
     Dates: start: 20041108, end: 20041108
  3. DEBRIDAT ^PARKE DAVIS^ [Suspect]
     Dosage: 100 MG ONCE IV
     Route: 042
     Dates: start: 20041108, end: 20041108
  4. ATROPINE [Concomitant]

REACTIONS (1)
  - SHOCK [None]
